FAERS Safety Report 26007159 (Version 4)
Quarter: 2025Q4

REPORT INFORMATION
  Report Type: Report from Study
  Country: MX (occurrence: MX)
  Receive Date: 20251106
  Receipt Date: 20251216
  Transmission Date: 20260117
  Serious: Yes (Other)
  Sender: NOVARTIS
  Company Number: MX-002147023-NVSC2025MX137773

PATIENT
  Age: 59 Year
  Sex: Female
  Weight: 50 kg

DRUGS (10)
  1. KISQALI [Suspect]
     Active Substance: RIBOCICLIB SUCCINATE
     Indication: Breast cancer
     Dosage: 3 DOSAGE FORM (200 MG), QD
     Route: 048
     Dates: start: 20250107
  2. KISQALI [Suspect]
     Active Substance: RIBOCICLIB SUCCINATE
     Indication: Metastasis
     Dosage: 3 DOSAGE FORM (200 MG), QD
     Route: 048
     Dates: start: 20250108
  3. KISQALI [Suspect]
     Active Substance: RIBOCICLIB SUCCINATE
     Dosage: 1 DOSAGE FORM, Q24H
     Route: 048
     Dates: end: 202504
  4. KISQALI [Suspect]
     Active Substance: RIBOCICLIB SUCCINATE
     Dosage: 1 DOSAGE FORM, Q12H
     Route: 048
     Dates: start: 202505, end: 202507
  5. KISQALI [Suspect]
     Active Substance: RIBOCICLIB SUCCINATE
     Dosage: 1 DOSAGE FORM, Q8H
     Route: 048
     Dates: start: 202507, end: 202510
  6. KISQALI [Suspect]
     Active Substance: RIBOCICLIB SUCCINATE
     Dosage: 1 DOSAGE FORM, Q12H
     Route: 048
     Dates: start: 20251016
  7. KISQALI [Suspect]
     Active Substance: RIBOCICLIB SUCCINATE
     Dosage: 3 DOSAGE FORM (600 MG), QD
     Route: 048
     Dates: start: 2025
  8. KISQALI [Suspect]
     Active Substance: RIBOCICLIB SUCCINATE
     Dosage: 2 DOSAGE FORM, QD (2 OF 200 MG) (400 MG)
     Route: 048
  9. KISQALI [Suspect]
     Active Substance: RIBOCICLIB SUCCINATE
     Dosage: 1 DOSAGE FORM OF 200 MG, Q12H
     Route: 048
  10. ANASTROZOLE [Suspect]
     Active Substance: ANASTROZOLE
     Indication: Antioestrogen therapy
     Dosage: 1 DOSAGE FORM, QD
     Route: 048
     Dates: start: 20250108

REACTIONS (27)
  - Peripheral swelling [Recovered/Resolved]
  - Oropharyngeal pain [Recovered/Resolved]
  - Swelling [Not Recovered/Not Resolved]
  - Tongue discomfort [Recovered/Resolved]
  - Throat irritation [Recovered/Resolved]
  - Gastritis [Recovered/Resolved]
  - Increased appetite [Recovered/Resolved]
  - Blood cholesterol increased [Recovered/Resolved]
  - Abdominal pain upper [Recovered/Resolved]
  - Headache [Recovered/Resolved]
  - Nausea [Recovered/Resolved]
  - Rash [Recovered/Resolved]
  - Pruritus [Recovered/Resolved]
  - Urticaria [Recovered/Resolved]
  - Fatigue [Recovered/Resolved]
  - Blood glucose increased [Recovered/Resolved]
  - Oral discomfort [Recovered/Resolved]
  - Skin exfoliation [Unknown]
  - Cough [Recovered/Resolved]
  - Discomfort [Not Recovered/Not Resolved]
  - Headache [Recovered/Resolved]
  - Abdominal pain upper [Recovered/Resolved]
  - Nausea [Recovered/Resolved]
  - Dyspnoea [Recovered/Resolved]
  - Generalised oedema [Unknown]
  - Off label use [Not Recovered/Not Resolved]
  - Throat irritation [Recovered/Resolved]

NARRATIVE: CASE EVENT DATE: 20250107
